FAERS Safety Report 19412570 (Version 2)
Quarter: 2021Q2

REPORT INFORMATION
  Report Type: Spontaneous
  Country: FR (occurrence: FR)
  Receive Date: 20210614
  Receipt Date: 20210614
  Transmission Date: 20210717
  Serious: Yes (Hospitalization)
  Sender: FDA-Public Use
  Company Number: FR-ACCORD-227711

PATIENT
  Age: 50 Year
  Sex: Female

DRUGS (5)
  1. PREVISCAN [FLUINDIONE] [Interacting]
     Active Substance: FLUINDIONE
     Indication: THROMBOSIS PROPHYLAXIS
     Route: 048
     Dates: start: 202103, end: 20210326
  2. DAPTOMYCIN. [Suspect]
     Active Substance: DAPTOMYCIN
     Indication: INFECTION
     Dosage: 500 MG PER DAY
     Route: 042
     Dates: start: 20210303, end: 20210326
  3. TINZAPARIN [Interacting]
     Active Substance: TINZAPARIN
     Indication: THROMBOSIS PROPHYLAXIS
     Dosage: 9000 UI PAR JOUR
     Route: 058
     Dates: start: 202102, end: 20210326
  4. KARDEGIC [Interacting]
     Active Substance: ASPIRIN DL-LYSINE
     Indication: PRODUCT USED FOR UNKNOWN INDICATION
     Dosage: 75 MG PAR JOUR ? TRAITEMENT PRIS AU LONG COURS
     Route: 048
  5. TAZOCILLINE [Interacting]
     Active Substance: PIPERACILLIN SODIUM\TAZOBACTAM SODIUM
     Indication: INFECTION
     Dosage: 4 GRAMS X 3 PER DAY
     Route: 042
     Dates: start: 20210303, end: 20210326

REACTIONS (8)
  - Rhabdomyolysis [Recovering/Resolving]
  - Haematoma muscle [Recovering/Resolving]
  - International normalised ratio increased [Recovered/Resolved]
  - Drug interaction [Recovered/Resolved]
  - Overdose [Recovered/Resolved]
  - Acute kidney injury [Recovering/Resolving]
  - Leukopenia [Recovered/Resolved]
  - Thrombocytopenia [Recovered/Resolved]

NARRATIVE: CASE EVENT DATE: 20210326
